FAERS Safety Report 6802110-8 (Version None)
Quarter: 2010Q2

REPORT INFORMATION
  Report Type: 
  Country: None (occurrence: None)
  Receive Date: 20100629
  Receipt Date: 20080414
  Transmission Date: 20101027
  Serious: Yes (Hospitalization, Disabling, Other)
  Sender: FDA-Public Use
  Company Number: US-PFIZER INC-2006104867

PATIENT
  Sex: Male
  Weight: 111.6 kg

DRUGS (1)
  1. BEXTRA [Suspect]
     Indication: PAIN
     Dates: start: 20041022, end: 20050319

REACTIONS (2)
  - ACUTE MYOCARDIAL INFARCTION [None]
  - ANXIETY [None]
